FAERS Safety Report 7128688-5 (Version None)
Quarter: 2010Q4

REPORT INFORMATION
  Report Type: 
  Country: None (occurrence: None)
  Receive Date: 20101130
  Receipt Date: 20101122
  Transmission Date: 20110411
  Serious: Yes (Hospitalization)
  Sender: FDA-Public Use
  Company Number: DK-ROCHE-737918

PATIENT
  Sex: Female
  Weight: 70 kg

DRUGS (9)
  1. ROACTEMRA [Suspect]
     Indication: RHEUMATOID ARTHRITIS
     Dosage: DOSE 8MG/KG
     Route: 042
     Dates: start: 20100121, end: 20100917
  2. ROACTEMRA [Suspect]
     Dosage: TREATMENT WAS PAUSED FOR 1 MONTH AFTER 17 AUGUST 2010
     Route: 042
  3. METHOTREXATE [Suspect]
     Indication: RHEUMATOID ARTHRITIS
     Route: 048
     Dates: start: 20100730
  4. KALEORID [Concomitant]
     Dosage: 750 MG EVERY NIGHT AND 1500 MG EVERY MORNING
     Route: 048
     Dates: start: 20100805
  5. ZARATOR [Concomitant]
     Route: 048
     Dates: start: 20051031
  6. DIGOXIN ^DAK^ [Concomitant]
     Route: 048
     Dates: start: 20051101
  7. HJERTEMAGNYL [Concomitant]
     Route: 048
     Dates: start: 20051105
  8. PINEX [Concomitant]
     Indication: ANALGESIC THERAPY
     Route: 048
     Dates: start: 20090507
  9. UNIKALK FORTE [Concomitant]
     Dosage: DOSE 400 MG/19UG
     Route: 048
     Dates: start: 20100730

REACTIONS (2)
  - ARTHRALGIA [None]
  - SEPTIC ARTHRITIS STREPTOCOCCAL [None]
